FAERS Safety Report 26001729 (Version 1)
Quarter: 2025Q4

REPORT INFORMATION
  Report Type: Spontaneous
  Country: US (occurrence: US)
  Receive Date: 20251105
  Receipt Date: 20251105
  Transmission Date: 20260118
  Serious: No
  Sender: GALPHARM INTERNATIONAL
  Company Number: US-PERRIGO-25US003942

PATIENT
  Age: 78 Year
  Sex: Female
  Weight: 74.83 kg

DRUGS (3)
  1. FAMOTIDINE [Suspect]
     Active Substance: FAMOTIDINE
     Indication: Gastrooesophageal reflux disease
     Dosage: 20 MG, PRN
     Route: 048
     Dates: start: 20250301, end: 20250324
  2. FAMOTIDINE [Suspect]
     Active Substance: FAMOTIDINE
     Indication: Wrong product administered
     Dosage: 1 ADDITIONAL TABLET, IN AM
     Route: 048
     Dates: start: 20250326, end: 20250326
  3. FAMOTIDINE [Suspect]
     Active Substance: FAMOTIDINE
     Dosage: 20 MG, BID
     Route: 048
     Dates: start: 20250325

REACTIONS (3)
  - Feeling of relaxation [Not Recovered/Not Resolved]
  - Extra dose administered [Recovered/Resolved]
  - Wrong product administered [Recovered/Resolved]

NARRATIVE: CASE EVENT DATE: 20250326
